FAERS Safety Report 10375166 (Version 1)
Quarter: 2014Q1

REPORT INFORMATION
  Report Type: Spontaneous
  Country: US (occurrence: None)
  Receive Date: 20140306
  Receipt Date: 20140306
  Transmission Date: 20141002
  Serious: Yes (Hospitalization, Other)
  Sender: FDA-Public Use
  Company Number: 163-21880-12120011

PATIENT
  Age: 73 Year
  Sex: Male
  Weight: 68.49 kg

DRUGS (5)
  1. REVLIMID [Suspect]
     Indication: PLASMA CELL MYELOMA
     Dosage: 15 MG, 14 IN 14 D, PO
     Route: 048
     Dates: start: 20111012, end: 201203
  2. ASA (ACETYLSALICYLIC ACID) [Concomitant]
  3. ZOMETA (ZOLEDRONIC ACID) [Concomitant]
  4. VELCADE (BORTEZOMIB) [Concomitant]
  5. DEXAMETHASONE (DEXAMETHASONE) [Concomitant]

REACTIONS (6)
  - Anaemia [None]
  - Neutropenia [None]
  - Asthenia [None]
  - Confusional state [None]
  - Thrombocytopenia [None]
  - Blood immunoglobulin A increased [None]
